FAERS Safety Report 7191376-3 (Version None)
Quarter: 2010Q4

REPORT INFORMATION
  Report Type: 
  Country: None (occurrence: None)
  Receive Date: 20101223
  Receipt Date: 20101210
  Transmission Date: 20110411
  Serious: Yes (Other)
  Sender: FDA-Public Use
  Company Number: CA-JNJCH-2010029200

PATIENT
  Age: 55 Year
  Sex: Male
  Weight: 113.4 kg

DRUGS (2)
  1. ULTRA STRENGTH ROLAIDS SOFTCHEW WILD CHERRY [Suspect]
     Indication: DYSPEPSIA
     Dosage: TEXT:ONE OR TWO AS NEEDED
     Route: 048
  2. DIOVAN [Concomitant]
     Indication: HYPERTENSION
     Route: 048

REACTIONS (3)
  - CHEST PAIN [None]
  - HAEMATOCHEZIA [None]
  - PRODUCT QUALITY ISSUE [None]
